FAERS Safety Report 7353603-9 (Version None)
Quarter: 2011Q1

REPORT INFORMATION
  Report Type: 
  Country: None (occurrence: None)
  Receive Date: 20110315
  Receipt Date: 20110310
  Transmission Date: 20110831
  Serious: Yes (Hospitalization)
  Sender: FDA-Public Use
  Company Number: CL-ABBOTT-10P-034-0678321-00

PATIENT
  Sex: Female
  Weight: 52 kg

DRUGS (3)
  1. HUMIRA [Suspect]
     Indication: JUVENILE ARTHRITIS
     Route: 058
     Dates: start: 20100728, end: 20101004
  2. METHOTREXATE [Concomitant]
     Indication: JUVENILE ARTHRITIS
     Dosage: 7.5MG ON MONDAY + 10MG ON TUESDAY
     Route: 048
  3. CELECOXIB [Concomitant]
     Indication: JUVENILE ARTHRITIS
     Route: 048
     Dates: start: 20101010

REACTIONS (5)
  - GASTRITIS [None]
  - PYREXIA [None]
  - VOMITING [None]
  - GASTROENTERITIS [None]
  - ABDOMINAL PAIN [None]
